FAERS Safety Report 16921468 (Version 2)
Quarter: 2020Q3

REPORT INFORMATION
  Report Type: Report from Study
  Country: US (occurrence: US)
  Receive Date: 20191015
  Receipt Date: 20200824
  Transmission Date: 20201102
  Serious: No
  Sender: FDA-Public Use
  Company Number: US-ALEXION PHARMACEUTICALS INC.-A201915652

PATIENT
  Sex: Female

DRUGS (1)
  1. STRENSIQ [Suspect]
     Active Substance: ASFOTASE ALFA
     Indication: HYPOPHOSPHATASIA
     Dosage: UNK
     Route: 065

REACTIONS (8)
  - Inflammation [Unknown]
  - Fatigue [Unknown]
  - Feeling hot [Unknown]
  - Menopause [Unknown]
  - Heat exhaustion [Unknown]
  - Hot flush [Unknown]
  - Pain in extremity [Unknown]
  - Hyperhidrosis [Unknown]
